FAERS Safety Report 5054365-0 (Version None)
Quarter: 2006Q2

REPORT INFORMATION
  Report Type: 
  Country: None (occurrence: None)
  Receive Date: 20060616
  Receipt Date: 20060519
  Transmission Date: 20061013
  Serious: Yes (Disabling)
  Sender: FDA-Public Use
  Company Number: 224941

PATIENT
  Age: 77 Year
  Sex: Male
  Weight: 68 kg

DRUGS (2)
  1. AVASTIN [Suspect]
     Indication: LUNG NEOPLASM MALIGNANT
     Dosage: 686 MG, Q2W, INTRAVENOUS
     Route: 042
     Dates: start: 20060309, end: 20060330
  2. TAXOTERE [Concomitant]

REACTIONS (2)
  - GASTRIC PERFORATION [None]
  - WOUND DEHISCENCE [None]
